FAERS Safety Report 15813671 (Version 1)
Quarter: 2019Q1

REPORT INFORMATION
  Report Type: Spontaneous
  Country: US (occurrence: US)
  Receive Date: 20190111
  Receipt Date: 20190111
  Transmission Date: 20190417
  Serious: Yes (Death)
  Sender: FDA-Public Use
  Company Number: US-INSYS THERAPEUTICS, INC-INS201901-000005

PATIENT
  Age: 52 Year
  Sex: Male

DRUGS (8)
  1. DIPHENHYDRAMINE. [Suspect]
     Active Substance: DIPHENHYDRAMINE
  2. FENTANYL. [Suspect]
     Active Substance: FENTANYL
     Indication: PRODUCT USED FOR UNKNOWN INDICATION
  3. PARA-FLUORO-ISOBUTYRYLFENTANYL [Suspect]
     Active Substance: 4-FLUOROISOBUTYRFENTANYL
  4. MORPHINE [Suspect]
     Active Substance: MORPHINE
  5. NORFENTANYL [Suspect]
     Active Substance: NORFENTANYL
  6. FLUOXETINE [Suspect]
     Active Substance: FLUOXETINE HYDROCHLORIDE
  7. NORFLUOXETINE [Suspect]
     Active Substance: NORFLUOXETINE
  8. CYCLOPROPYLFENTANYL [Suspect]
     Active Substance: CYCLOPROPYLFENTANYL

REACTIONS (1)
  - Toxicity to various agents [Fatal]

NARRATIVE: CASE EVENT DATE: 2017
